FAERS Safety Report 9005887 (Version 4)
Quarter: 2013Q1

REPORT INFORMATION
  Report Type: Spontaneous
  Country: DE (occurrence: DE)
  Receive Date: 20130109
  Receipt Date: 20130328
  Transmission Date: 20140127
  Serious: Yes (Life-Threatening, Hospitalization, Other)
  Sender: FDA-Public Use
  Company Number: DE-AMGEN-DEUSP2013001376

PATIENT
  Age: 50 Year
  Sex: Male
  Weight: 70 kg

DRUGS (13)
  1. ENBREL [Suspect]
     Indication: PRODUCT USED FOR UNKNOWN INDICATION
     Dosage: 50 MG, WEEKLY
     Dates: start: 201206
  2. IBUPROFEN [Suspect]
     Indication: SPONDYLITIS
     Dosage: 600 MG, TID
     Route: 048
  3. BELOC ZOK [Concomitant]
     Indication: PRODUCT USED FOR UNKNOWN INDICATION
     Dosage: 23.75 MG, UNK
  4. MARCOUMAR [Concomitant]
     Indication: PRODUCT USED FOR UNKNOWN INDICATION
     Dosage: UNK
  5. MARCOUMAR [Concomitant]
     Dosage: AFTER INR
  6. RAMIPRIL [Concomitant]
     Indication: PRODUCT USED FOR UNKNOWN INDICATION
     Dosage: 10 MG, UNK
  7. RAMIPRIL [Concomitant]
     Dosage: 5 MG
  8. RAMIPRIL [Concomitant]
     Dosage: UNK MG, UNK
  9. PANTOPRAZOL [Concomitant]
     Indication: SPONDYLITIS
     Dosage: 40 MG, 1X/DAY
     Route: 048
  10. PANTOPRAZOL [Concomitant]
     Indication: SPONDYLITIS
  11. TORASEMIDE [Concomitant]
     Indication: PRODUCT USED FOR UNKNOWN INDICATION
     Dosage: UNK
  12. XIPAMIDE [Concomitant]
     Indication: PRODUCT USED FOR UNKNOWN INDICATION
     Dosage: UNKNOWN
  13. SPIRONOLACTONE [Concomitant]
     Indication: CARDIAC FAILURE
     Dosage: UNKNOWN

REACTIONS (4)
  - Renal failure [Recovered/Resolved]
  - Tubulointerstitial nephritis [Not Recovered/Not Resolved]
  - Aortic arteriosclerosis [Unknown]
  - Renal cyst [Unknown]
